FAERS Safety Report 4519467-3 (Version None)
Quarter: 2004Q4

REPORT INFORMATION
  Report Type: 
  Country: None (occurrence: None)
  Receive Date: 20041202
  Receipt Date: 20041116
  Transmission Date: 20050328
  Serious: Yes (Hospitalization)
  Sender: FDA-Public Use
  Company Number: 2004CG02121

PATIENT
  Age: 76 Year
  Sex: Male
  Weight: 71 kg

DRUGS (6)
  1. CRESTOR [Suspect]
     Indication: HYPERCHOLESTEROLAEMIA
     Dosage: 10 MG DAILY PO
     Route: 048
     Dates: start: 20040514, end: 20040701
  2. ISOPTIN [Suspect]
     Indication: HYPERTENSION
     Dosage: 1 DF QD O
     Route: 048
     Dates: start: 20040501, end: 20040701
  3. PREVISCAN [Concomitant]
  4. PROPOFOL [Concomitant]
  5. ZOLPIDEM [Concomitant]
  6. VAGOSTABYL [Concomitant]

REACTIONS (6)
  - ABDOMINAL PAIN UPPER [None]
  - ABNORMAL BEHAVIOUR [None]
  - BALANCE DISORDER [None]
  - CONFUSIONAL STATE [None]
  - DRUG INTERACTION [None]
  - HEADACHE [None]
